FAERS Safety Report 9729087 (Version 1)
Quarter: 2013Q4

REPORT INFORMATION
  Report Type: Spontaneous
  Country: JP (occurrence: JP)
  Receive Date: 20131204
  Receipt Date: 20131204
  Transmission Date: 20140711
  Serious: Yes (Hospitalization)
  Sender: FDA-Public Use
  Company Number: PHHY2013JP136509

PATIENT
  Age: 82 Year
  Sex: Female

DRUGS (2)
  1. WARFARIN [Suspect]
     Route: 048
     Dates: start: 2003
  2. WARFARIN [Suspect]
     Dosage: 2 MG, PER DAY

REACTIONS (6)
  - Tubulointerstitial nephritis [Unknown]
  - Glomerulonephritis [Unknown]
  - Renal failure acute [Unknown]
  - Oedema peripheral [Unknown]
  - Haematuria [Unknown]
  - Proteinuria [Unknown]
